FAERS Safety Report 5072371-7 (Version None)
Quarter: 2006Q3

REPORT INFORMATION
  Report Type: 
  Country: None (occurrence: None)
  Receive Date: 20060802
  Receipt Date: 20060719
  Transmission Date: 20061208
  Serious: Yes (Death)
  Sender: FDA-Public Use
  Company Number: 2006-DE-03734GD

PATIENT
  Age: 53 Year
  Sex: Male

DRUGS (3)
  1. PREDNISONE TAB [Suspect]
     Indication: VASCULITIS CEREBRAL
  2. CYCLOPHOSPHAMIDE [Suspect]
     Indication: VASCULITIS CEREBRAL
  3. INFLIXIMAB                   (INFLIXIMAB) [Suspect]
     Indication: INFLAMMATORY BOWEL DISEASE

REACTIONS (15)
  - APHASIA [None]
  - CONVULSION [None]
  - DEPRESSED LEVEL OF CONSCIOUSNESS [None]
  - DIARRHOEA HAEMORRHAGIC [None]
  - DYSARTHRIA [None]
  - ENCEPHALITIS [None]
  - GENERAL PHYSICAL HEALTH DETERIORATION [None]
  - HEMIANOPIA [None]
  - HEMIPARESIS [None]
  - HEMIPLEGIA [None]
  - HYPOAESTHESIA [None]
  - HYPOAESTHESIA ORAL [None]
  - MENINGITIS ASEPTIC [None]
  - SENSORY LOSS [None]
  - VASCULITIS CEREBRAL [None]
